FAERS Safety Report 9914501 (Version 1)
Quarter: 2014Q1

REPORT INFORMATION
  Report Type: Spontaneous
  Country: US (occurrence: None)
  Receive Date: 20140218
  Receipt Date: 20140218
  Transmission Date: 20141002
  Serious: No
  Sender: FDA-Public Use
  Company Number: 2014-00031

PATIENT
  Sex: Female

DRUGS (1)
  1. UNSPECIFIED ZICAM PRODUCT [Suspect]
     Dosage: ORALLY NOS
     Route: 048

REACTIONS (2)
  - Parosmia [None]
  - Dysgeusia [None]
